FAERS Safety Report 20596634 (Version 2)
Quarter: 2022Q2

REPORT INFORMATION
  Report Type: Spontaneous
  Country: AU (occurrence: None)
  Receive Date: 20220315
  Receipt Date: 20220607
  Transmission Date: 20220720
  Serious: Yes (Hospitalization, Other)
  Sender: FDA-Public Use
  Company Number: 2022A108399

PATIENT
  Sex: Female

DRUGS (3)
  1. VAXZEVRIA [Suspect]
     Active Substance: AZD-1222
     Dosage: DOSE 1
     Route: 030
  2. VAXZEVRIA [Suspect]
     Active Substance: AZD-1222
     Dosage: DOSE 2
     Route: 030
  3. PULMICORT TURBUHALER [Suspect]
     Active Substance: BUDESONIDE
     Indication: COVID-19
     Route: 055

REACTIONS (4)
  - Stevens-Johnson syndrome [Unknown]
  - Hypersensitivity [Unknown]
  - COVID-19 [Unknown]
  - Off label use [Unknown]
